FAERS Safety Report 13647147 (Version 1)
Quarter: 2017Q2

REPORT INFORMATION
  Report Type: Spontaneous
  Country: US (occurrence: US)
  Receive Date: 20170613
  Receipt Date: 20170613
  Transmission Date: 20170830
  Serious: No
  Sender: FDA-Public Use
  Company Number: US-ALLERGAN-1712437US

PATIENT
  Sex: Female

DRUGS (1)
  1. BYVALSON [Suspect]
     Active Substance: NEBIVOLOL HYDROCHLORIDE\VALSARTAN
     Indication: ARRHYTHMIA

REACTIONS (2)
  - Cough [Not Recovered/Not Resolved]
  - Off label use [Unknown]
